FAERS Safety Report 4327398-7 (Version None)
Quarter: 2004Q1

REPORT INFORMATION
  Report Type: 
  Country: None (occurrence: None)
  Receive Date: 20040330
  Receipt Date: 20040323
  Transmission Date: 20041129
  Serious: Yes (Hospitalization)
  Sender: FDA-Public Use
  Company Number: US-MERCK-0403USA02135

PATIENT
  Age: 70 Year
  Sex: Female

DRUGS (12)
  1. COGENTIN [Suspect]
     Indication: SCHIZOPHRENIA
     Route: 048
  2. BUSPIRONE HYDROCHLORIDE [Concomitant]
     Route: 065
  3. DESLORATADINE [Suspect]
     Route: 065
  4. HYDROCHLOROTHIAZIDE [Concomitant]
     Route: 065
  5. HYOSCYAMINE [Suspect]
     Indication: URINARY RETENTION
     Route: 065
  6. LEVOTHYROXINE SODIUM [Concomitant]
     Route: 065
  7. MECLIZINE [Suspect]
     Route: 065
  8. NABUMETONE [Concomitant]
     Route: 065
  9. OXYBUTYNIN [Suspect]
     Indication: URINARY RETENTION
     Route: 065
  10. RANITIDINE [Suspect]
     Route: 065
  11. RISEDRONATE SODIUM [Concomitant]
     Route: 065
  12. TRIFLUOPERAZINE HYDROCHLORIDE [Suspect]
     Indication: SCHIZOPHRENIA
     Route: 065

REACTIONS (3)
  - ANTICHOLINERGIC SYNDROME [None]
  - COGNITIVE DISORDER [None]
  - FALL [None]
